FAERS Safety Report 4556139-3 (Version None)
Quarter: 2005Q1

REPORT INFORMATION
  Report Type: 
  Country: None (occurrence: None)
  Receive Date: 20050114
  Receipt Date: 20050107
  Transmission Date: 20050727
  Serious: Yes (Hospitalization)
  Sender: FDA-Public Use
  Company Number: K200500022

PATIENT
  Age: 73 Year
  Sex: Female

DRUGS (7)
  1. ALTACE [Suspect]
     Indication: ESSENTIAL HYPERTENSION
     Dosage: 2.5 MG, QD, ORAL
     Route: 048
  2. FUROSEMIDE [Suspect]
     Indication: OEDEMA
     Dosage: 40 MG, QD, ORAL
     Route: 048
  3. INSULIN [Suspect]
     Indication: DIABETES MELLITUS
     Dosage: INTRAMUSCULAR
     Route: 030
  4. TRACLEER [Suspect]
     Indication: PULMONARY HYPERTENSION
     Dosage: SEE IMAGE
     Route: 048
     Dates: start: 20021213, end: 20030109
  5. TRACLEER [Suspect]
     Indication: PULMONARY HYPERTENSION
     Dosage: SEE IMAGE
     Route: 048
     Dates: start: 20030110
  6. PREVISCAN (FLUINDIONE) TABLET, 20MG [Suspect]
     Indication: EMBOLISM
     Dosage: 20 MG, QD, ORAL
     Route: 048
  7. OMEPRAZOLE [Suspect]
     Indication: OESOPHAGITIS
     Dosage: 10 MG, QD, ORAL
     Route: 048

REACTIONS (1)
  - MICROCYTIC ANAEMIA [None]
